FAERS Safety Report 16702323 (Version 1)
Quarter: 2019Q3

REPORT INFORMATION
  Report Type: Report from Study
  Country: US (occurrence: US)
  Receive Date: 20190814
  Receipt Date: 20190814
  Transmission Date: 20191004
  Serious: No
  Sender: FDA-Public Use
  Company Number: US-LEO PHARMA-323594

PATIENT
  Sex: Female

DRUGS (2)
  1. SKINOREN GEL [Suspect]
     Active Substance: AZELAIC ACID
     Indication: ROSACEA
     Route: 061
  2. SKINOREN GEL [Concomitant]
     Active Substance: AZELAIC ACID
     Indication: ROSACEA
     Dates: start: 2000

REACTIONS (4)
  - Skin burning sensation [Not Recovered/Not Resolved]
  - Rhinalgia [Not Recovered/Not Resolved]
  - Skin exfoliation [Not Recovered/Not Resolved]
  - Feeling hot [Not Recovered/Not Resolved]
